FAERS Safety Report 10038774 (Version 2)
Quarter: 2014Q2

REPORT INFORMATION
  Report Type: Report from Study
  Country: US (occurrence: US)
  Receive Date: 20140326
  Receipt Date: 20140404
  Transmission Date: 20141212
  Serious: Yes (Death, Other)
  Sender: FDA-Public Use
  Company Number: US-ACTELION-A-NJ2014-96479

PATIENT
  Age: 62 Year
  Sex: Male

DRUGS (2)
  1. VENTAVIS [Suspect]
     Indication: PULMONARY ARTERIAL HYPERTENSION
     Dosage: 5 MCG, 4-9X/DAY
     Route: 055
     Dates: start: 20100712, end: 20140328
  2. COUMADIN [Concomitant]

REACTIONS (2)
  - Death [Fatal]
  - Terminal state [Unknown]
